FAERS Safety Report 7531982-7 (Version None)
Quarter: 2011Q2

REPORT INFORMATION
  Report Type: 
  Country: None (occurrence: None)
  Receive Date: 20110608
  Receipt Date: 20110531
  Transmission Date: 20111010
  Serious: Yes (Death, Hospitalization)
  Sender: FDA-Public Use
  Company Number: US-ACTELION-A-NJ2011-45497

PATIENT

DRUGS (3)
  1. CALCIUM CHANNEL BLOCKERS [Concomitant]
  2. COUMADIN [Concomitant]
  3. TRACLEER [Suspect]
     Indication: PULMONARY ARTERIAL HYPERTENSION
     Dosage: UNK
     Route: 048
     Dates: start: 20080824, end: 20110520

REACTIONS (7)
  - ARTHRALGIA [None]
  - CARDIAC FAILURE CONGESTIVE [None]
  - JOINT INJURY [None]
  - MUSCLE INJURY [None]
  - FALL [None]
  - HIP FRACTURE [None]
  - PELVIC FRACTURE [None]
